FAERS Safety Report 10573248 (Version 2)
Quarter: 2015Q1

REPORT INFORMATION
  Report Type: Spontaneous
  Country: US (occurrence: None)
  Receive Date: 20141103
  Receipt Date: 20150202
  Transmission Date: 20150720
  Serious: Yes (Other)
  Sender: FDA-Public Use
  Company Number: 201410139

PATIENT
  Age: 59 Year
  Sex: Male

DRUGS (2)
  1. TRANSDERMAL TESTOSTERONE (TESTOSTERONE) [Concomitant]
  2. XIAFLEX [Suspect]
     Active Substance: COLLAGENASE CLOSTRIDIUM HISTOLYTICUM
     Indication: PEYRONIE^S DISEASE
     Dosage: 1 IN 1 D, INTRALESIONAL

REACTIONS (3)
  - Loss of consciousness [None]
  - Dyspnoea [None]
  - Hypotension [None]

NARRATIVE: CASE EVENT DATE: 20141017
